FAERS Safety Report 20128115 (Version 1)
Quarter: 2021Q4

REPORT INFORMATION
  Report Type: Report from Study
  Country: CA (occurrence: CA)
  Receive Date: 20211129
  Receipt Date: 20211129
  Transmission Date: 20220303
  Serious: Yes (Other)
  Sender: FDA-Public Use
  Company Number: CA-JNJFOC-20211155585

PATIENT
  Age: 13 Year
  Sex: Male
  Weight: 46.8 kg

DRUGS (1)
  1. REMICADE [Suspect]
     Active Substance: INFLIXIMAB
     Indication: Crohn^s disease
     Route: 042
     Dates: start: 20200804

REACTIONS (1)
  - Epiphyseal injury [Recovering/Resolving]

NARRATIVE: CASE EVENT DATE: 20211114
